FAERS Safety Report 14418472 (Version 2)
Quarter: 2020Q2

REPORT INFORMATION
  Report Type: Spontaneous
  Country: US (occurrence: US)
  Receive Date: 20180122
  Receipt Date: 20200619
  Transmission Date: 20200713
  Serious: No
  Sender: FDA-Public Use
  Company Number: US-INTERCEPT-PMOCA2017001498

PATIENT

DRUGS (8)
  1. OCALIVA [Suspect]
     Active Substance: OBETICHOLIC ACID
     Indication: PRIMARY BILIARY CHOLANGITIS
     Dosage: 5 MG, QD
     Route: 048
     Dates: start: 201610
  2. URSODIOL. [Concomitant]
     Active Substance: URSODIOL
  3. CALCIUM + VITAMIN D3 [Concomitant]
     Active Substance: CALCIUM\CHOLECALCIFEROL
  4. MILK THISTLE                       /01131701/ [Concomitant]
     Active Substance: DIETARY SUPPLEMENT\HERBALS\MILK THISTLE
  5. TREMFYA [Concomitant]
     Active Substance: GUSELKUMAB
  6. VITAMIN C [Concomitant]
     Active Substance: ASCORBIC ACID
  7. OCALIVA [Suspect]
     Active Substance: OBETICHOLIC ACID
     Dosage: 5 MG, 3X/WK
     Route: 048
  8. FISH OIL [Concomitant]
     Active Substance: FISH OIL

REACTIONS (1)
  - Pruritus [Recovered/Resolved]
